FAERS Safety Report 7391770-1 (Version None)
Quarter: 2011Q2

REPORT INFORMATION
  Report Type: 
  Country: None (occurrence: None)
  Receive Date: 20110404
  Receipt Date: 20110328
  Transmission Date: 20111010
  Serious: Yes (Other)
  Sender: FDA-Public Use
  Company Number: NL-ROCHE-760873

PATIENT
  Sex: Male
  Weight: 84 kg

DRUGS (1)
  1. ROACTEMRA [Suspect]
     Route: 042

REACTIONS (1)
  - ABORTION SPONTANEOUS [None]
